FAERS Safety Report 8958482 (Version 1)
Quarter: 2012Q4

REPORT INFORMATION
  Report Type: 
  Country: US (occurrence: None)
  Receive Date: 20121205
  Receipt Date: 20121205
  Transmission Date: 20130627
  Serious: Yes (Hospitalization)
  Sender: FDA-Public Use
  Company Number: None

PATIENT
  Sex: Female
  Weight: 89 kg

DRUGS (2)
  1. CARBOPLATIN [Suspect]
     Dates: end: 20120618
  2. PACLITAXEL (TAXOL) [Suspect]
     Dates: end: 20120625

REACTIONS (7)
  - Pyrexia [None]
  - Chills [None]
  - Fatigue [None]
  - Malaise [None]
  - Cough [None]
  - Staphylococcus test positive [None]
  - Streptococcus test positive [None]
